FAERS Safety Report 11432380 (Version 1)
Quarter: 2015Q3

REPORT INFORMATION
  Report Type: Report from Study
  Country: US (occurrence: US)
  Receive Date: 20150828
  Receipt Date: 20150828
  Transmission Date: 20151125
  Serious: Yes (Hospitalization)
  Sender: FDA-Public Use
  Company Number: US-BAYER-2015-393994

PATIENT
  Age: 51 Year
  Sex: Female

DRUGS (2)
  1. STIVARGA [Suspect]
     Active Substance: REGORAFENIB
     Indication: COLON CANCER
  2. STIVARGA [Suspect]
     Active Substance: REGORAFENIB
     Indication: COLORECTAL CANCER METASTATIC
     Dosage: 160 MG, QD
     Route: 048
     Dates: start: 20150801, end: 20150812

REACTIONS (7)
  - Urticaria [None]
  - Decreased appetite [None]
  - Dysphonia [None]
  - Pruritus [None]
  - Rash papular [None]
  - Diarrhoea [None]
  - Generalised oedema [None]

NARRATIVE: CASE EVENT DATE: 20150801
